FAERS Safety Report 25050949 (Version 1)
Quarter: 2025Q1

REPORT INFORMATION
  Report Type: Report from Study
  Country: US (occurrence: US)
  Receive Date: 20250307
  Receipt Date: 20250307
  Transmission Date: 20250409
  Serious: Yes (Death)
  Sender: PFIZER
  Company Number: US-PFIZER INC-PV202500026679

PATIENT
  Age: 7 Decade
  Sex: Female

DRUGS (3)
  1. CYTARABINE [Suspect]
     Active Substance: CYTARABINE
     Indication: Blastic plasmacytoid dendritic cell neoplasia
  2. MITOXANTRONE HYDROCHLORIDE [Suspect]
     Active Substance: MITOXANTRONE HYDROCHLORIDE
     Indication: Blastic plasmacytoid dendritic cell neoplasia
  3. TAGRAXOFUSP [Suspect]
     Active Substance: TAGRAXOFUSP
     Indication: Blastic plasmacytoid dendritic cell neoplasia

REACTIONS (1)
  - Death [Fatal]
